FAERS Safety Report 10808007 (Version 1)
Quarter: 2015Q1

REPORT INFORMATION
  Report Type: Report from Study
  Country: US (occurrence: US)
  Receive Date: 20150217
  Receipt Date: 20150217
  Transmission Date: 20150721
  Serious: No
  Sender: FDA-Public Use
  Company Number: US-ABBVIE-14K-163-1247964-00

PATIENT
  Age: 57 Year
  Sex: Female

DRUGS (5)
  1. HUMIRA [Suspect]
     Active Substance: ADALIMUMAB
     Indication: PSORIATIC ARTHROPATHY
     Dates: start: 20140411
  2. OINTMENT [Concomitant]
     Active Substance: UNSPECIFIED INGREDIENT
     Indication: PSORIASIS
     Dosage: AT NIGHT
  3. TOPICAL CREAM [Concomitant]
     Active Substance: UNSPECIFIED INGREDIENT
     Indication: PSORIASIS
     Dosage: IN MORNING
  4. GABAPENTIN. [Concomitant]
     Active Substance: GABAPENTIN
     Indication: PSORIASIS
     Dosage: 6 PILLS
  5. SCALP SPRAY [Concomitant]
     Indication: PSORIASIS

REACTIONS (3)
  - Thrombosis [Recovered/Resolved]
  - Proctalgia [Recovering/Resolving]
  - Anorectal discomfort [Recovering/Resolving]

NARRATIVE: CASE EVENT DATE: 20140528
